FAERS Safety Report 20719080 (Version 2)
Quarter: 2022Q4

REPORT INFORMATION
  Report Type: Spontaneous
  Country: US (occurrence: US)
  Receive Date: 20220418
  Receipt Date: 20221012
  Transmission Date: 20230113
  Serious: Yes (Other)
  Sender: FDA-Public Use
  Company Number: US-SA-SAC20220413001860

PATIENT
  Age: 68 Year
  Sex: Female

DRUGS (1)
  1. ZANTAC [Suspect]
     Active Substance: RANITIDINE HYDROCHLORIDE
     Indication: Dyspepsia
     Dosage: 150 MG
     Dates: start: 201001, end: 202001

REACTIONS (4)
  - Hepatic cancer [Not Recovered/Not Resolved]
  - Gastric cancer [Not Recovered/Not Resolved]
  - Oesophageal cancer metastatic [Unknown]
  - Disease progression [Not Recovered/Not Resolved]

NARRATIVE: CASE EVENT DATE: 20201101
